FAERS Safety Report 10658194 (Version 1)
Quarter: 2014Q4

REPORT INFORMATION
  Report Type: Spontaneous
  Country: US (occurrence: None)
  Receive Date: 20141205
  Receipt Date: 20141205
  Transmission Date: 20150529
  Serious: Yes (Other)
  Sender: FDA-Public Use
  Company Number: 163-POMAL-14084259

PATIENT
  Age: 73 Year
  Sex: Male
  Weight: 104.3 kg

DRUGS (6)
  1. POMALYST [Suspect]
     Active Substance: POMALIDOMIDE
     Indication: PLASMA CELL MYELOMA
     Dosage: 4MG, 21 IN 28D, PO??PERMANENTLY DISCONTINUED
     Route: 048
     Dates: start: 20140218
  2. CARBIDOPA/LEVODOPA (SINEMET) [Concomitant]
  3. DEXAMETHASONE. [Concomitant]
     Active Substance: DEXAMETHASONE
  4. FUROSEMIDE. [Concomitant]
     Active Substance: FUROSEMIDE
  5. LANTUS SOLOSTAR [Concomitant]
     Active Substance: INSULIN GLARGINE
  6. PROAIR HFA [Concomitant]
     Active Substance: ALBUTEROL SULFATE

REACTIONS (1)
  - Plasma cell myeloma [None]
